FAERS Safety Report 5395871-9 (Version None)
Quarter: 2007Q3

REPORT INFORMATION
  Report Type: 
  Country: None (occurrence: None)
  Receive Date: 20070718
  Receipt Date: 20070507
  Transmission Date: 20080115
  Serious: Yes (Hospitalization, Other)
  Sender: FDA-Public Use
  Company Number: 2006140838

PATIENT
  Age: 53 Year
  Sex: Male
  Weight: 94.3 kg

DRUGS (1)
  1. CELEBREX [Suspect]
     Indication: GOUT
     Dosage: 600 MG (200 MG,3 IN 1 D),ORAL
     Route: 048
     Dates: start: 19990401

REACTIONS (1)
  - MYOCARDIAL INFARCTION [None]
